FAERS Safety Report 14459882 (Version 1)
Quarter: 2018Q1

REPORT INFORMATION
  Report Type: Spontaneous
  Country: US (occurrence: US)
  Receive Date: 20180129
  Receipt Date: 20180129
  Transmission Date: 20180509
  Serious: Yes (Other)
  Sender: FDA-Public Use
  Company Number: None

PATIENT
  Age: 54 Year
  Sex: Female

DRUGS (1)
  1. TAMIFLU [Suspect]
     Active Substance: OSELTAMIVIR PHOSPHATE
     Dates: start: 20180128, end: 20180129

REACTIONS (8)
  - Feeling abnormal [None]
  - Restlessness [None]
  - Delirium [None]
  - Agitation [None]
  - Aggression [None]
  - Confusional state [None]
  - Suicidal ideation [None]
  - Fear [None]

NARRATIVE: CASE EVENT DATE: 20180129
